FAERS Safety Report 22198530 (Version 8)
Quarter: 2023Q2

REPORT INFORMATION
  Report Type: Report from Study
  Country: TR (occurrence: None)
  Receive Date: 20230411
  Receipt Date: 20230524
  Transmission Date: 20230722
  Serious: Yes (Hospitalization)
  Sender: FDA-Public Use
  Company Number: TR-ROCHE-3325519

PATIENT
  Age: 69 Year
  Sex: Male
  Weight: 65 kg

DRUGS (20)
  1. RITUXIMAB [Suspect]
     Active Substance: RITUXIMAB
     Indication: Diffuse large B-cell lymphoma
     Dosage: ON 21/MAR/2023, 649 MG OF RITUXIMAB WAS LAST ADMINISTERED PRIOR TO AE/SAE ONSET.
     Route: 041
     Dates: start: 20230321
  2. GEMCITABINE [Suspect]
     Active Substance: GEMCITABINE
     Indication: Diffuse large B-cell lymphoma
     Dosage: ON 22/MAR/2023, 1730 MG OF GEMCITABINE WAS LAST ADMINISTERED PRIOR TO AE/SAE ONSET
     Route: 042
     Dates: start: 20230322
  3. OXALIPLATIN [Suspect]
     Active Substance: OXALIPLATIN
     Indication: Diffuse large B-cell lymphoma
     Dosage: ON 22/MAR/2023, 173 MG OF OXALIPLATIN WAS LAST ADMINISTERED PRIOR TO AE/SAE ONSET
     Route: 042
     Dates: start: 20230322
  4. BACTRIM [Concomitant]
     Active Substance: SULFAMETHOXAZOLE\TRIMETHOPRIM
     Route: 048
  5. ASPIRIN [Concomitant]
     Active Substance: ASPIRIN
     Route: 048
  6. NEBIVOLOL HYDROCHLORIDE [Concomitant]
     Active Substance: NEBIVOLOL HYDROCHLORIDE
     Route: 048
  7. PHENIRAMINE [Concomitant]
     Active Substance: PHENIRAMINE
     Dosage: 1 AMPULE AS REQUIRED
     Route: 042
     Dates: start: 20230321
  8. AROLOL HYDROCHLORIDE [Concomitant]
     Dosage: 1 AMPULE
     Route: 042
     Dates: start: 20230321
  9. METHYLPREDNISOLONE [Concomitant]
     Active Substance: METHYLPREDNISOLONE
     Route: 042
     Dates: start: 20230321
  10. VALTREX [Concomitant]
     Active Substance: VALACYCLOVIR HYDROCHLORIDE
     Route: 048
     Dates: start: 20230321
  11. PANTOPRAZOLE [Concomitant]
     Active Substance: PANTOPRAZOLE
     Route: 042
     Dates: start: 20230404
  12. ASPIRIN [Concomitant]
     Active Substance: ASPIRIN
     Route: 048
     Dates: start: 20230404
  13. BEMIKS [Concomitant]
     Route: 042
     Dates: start: 20230407
  14. MAGNORM [Concomitant]
     Route: 048
     Dates: start: 20230407
  15. UNSPECIFIED INGREDIENT [Concomitant]
     Active Substance: UNSPECIFIED INGREDIENT
     Dosage: 700 TABLET
     Route: 048
     Dates: start: 20230407
  16. KALINOR [Concomitant]
     Route: 048
     Dates: start: 20230407
  17. DUPHALAC [Concomitant]
     Active Substance: LACTULOSE
     Route: 048
     Dates: start: 20230407
  18. NORVASC [Concomitant]
     Active Substance: AMLODIPINE BESYLATE
     Route: 048
     Dates: start: 20230407
  19. ALLOPURINOL [Concomitant]
     Active Substance: ALLOPURINOL
     Route: 048
  20. EMETRIL [Concomitant]
     Dosage: 1 AMPULE
     Route: 058
     Dates: start: 20230412, end: 20230412

REACTIONS (2)
  - Haematological infection [Not Recovered/Not Resolved]
  - Hepatic enzyme increased [Not Recovered/Not Resolved]

NARRATIVE: CASE EVENT DATE: 20230331
